FAERS Safety Report 16297090 (Version 1)
Quarter: 2019Q2

REPORT INFORMATION
  Report Type: Spontaneous
  Country: US (occurrence: US)
  Receive Date: 20190510
  Receipt Date: 20190510
  Transmission Date: 20190711
  Serious: Yes (Hospitalization, Other)
  Sender: FDA-Public Use
  Company Number: US-PCCINC-2019-PEL-000134

PATIENT
  Age: 2 Month
  Sex: Male
  Weight: 4.8 kg

DRUGS (3)
  1. PROPOFOL. [Suspect]
     Active Substance: PROPOFOL
     Indication: PRODUCT USED FOR UNKNOWN INDICATION
     Dosage: 2 MILLIGRAM/KILOGRAM
     Route: 042
  2. SEVOFLURANE, USP [Suspect]
     Active Substance: SEVOFLURANE
     Indication: ANAESTHESIA
     Dosage: 8 PERCENT
  3. SEVOFLURANE, USP [Suspect]
     Active Substance: SEVOFLURANE
     Dosage: 3 PERCENT

REACTIONS (9)
  - Hypoxic-ischaemic encephalopathy [Unknown]
  - Tachycardia [Unknown]
  - Electrocardiogram ST segment elevation [Unknown]
  - Cardiac arrest [Unknown]
  - Aorta hypoplasia [Unknown]
  - Seizure [Unknown]
  - Electrocardiogram QRS complex prolonged [Unknown]
  - Left ventricular failure [Unknown]
  - Hypotension [Unknown]
